FAERS Safety Report 7162017-6 (Version None)
Quarter: 2010Q4

REPORT INFORMATION
  Report Type: 
  Country: None (occurrence: None)
  Receive Date: 20101201
  Receipt Date: 20101117
  Transmission Date: 20110411
  Serious: Yes (Death)
  Sender: FDA-Public Use
  Company Number: AE 2010-383

PATIENT
  Age: 65 Year
  Sex: Female

DRUGS (23)
  1. FAZACLO ODT [Suspect]
     Dosage: 100 MG DAILY PO
     Route: 048
     Dates: start: 20090507, end: 20101116
  2. OXYBUTYNIN [Concomitant]
  3. MOMETASONE FUROATE CREAM [Concomitant]
  4. LEVAQUIN [Concomitant]
  5. ALBUTEROL [Concomitant]
  6. CEFDINIR [Concomitant]
  7. AZITHROMYCIN [Concomitant]
  8. FUROSEMIDE [Concomitant]
  9. METFORMIN [Concomitant]
  10. LISINOPRIL [Concomitant]
  11. THERA M [Concomitant]
  12. TRICOR [Concomitant]
  13. CRANBERRY [Concomitant]
  14. LEXAPRO [Concomitant]
  15. CETIRIZINE HCL [Concomitant]
  16. SIMVASTATIN [Concomitant]
  17. ARICEPT [Concomitant]
  18. GABAPENTIN [Concomitant]
  19. ASCORBIC ACID [Concomitant]
  20. ACETAMINOPHEN [Concomitant]
  21. LOTRIMIN AF POWDER [Concomitant]
  22. MILK OF MAGNESIA [Concomitant]
  23. ROBITUSSIN DM [Concomitant]

REACTIONS (1)
  - DEATH [None]
